FAERS Safety Report 8790986 (Version 1)
Quarter: 2012Q4

REPORT INFORMATION
  Report Type: Spontaneous
  Country: US (occurrence: None)
  Receive Date: 20120907
  Receipt Date: 20120907
  Transmission Date: 20130627
  Serious: Yes (Other)
  Sender: FDA-Public Use
  Company Number: 2012-003212

PATIENT
  Age: 70 Year
  Sex: Female

DRUGS (1)
  1. ACTONEL [Suspect]
     Indication: OSTEOPOROSIS
     Dates: start: 201008, end: 20120801

REACTIONS (5)
  - Skin cancer [None]
  - Pain in jaw [None]
  - Joint stiffness [None]
  - Headache [None]
  - Neck pain [None]
